FAERS Safety Report 9463840 (Version 1)
Quarter: 2013Q3

REPORT INFORMATION
  Report Type: Spontaneous
  Country: FR (occurrence: FR)
  Receive Date: 20130819
  Receipt Date: 20130819
  Transmission Date: 20140515
  Serious: Yes (Death, Congenital Anomaly)
  Sender: FDA-Public Use
  Company Number: FR-PFIZER INC-2013236215

PATIENT
  Sex: Female
  Weight: 3.06 kg

DRUGS (5)
  1. XANAX [Suspect]
     Indication: ANXIETY
     Dosage: 0.25 MG, DAILY
     Route: 064
     Dates: start: 2008
  2. NORSET [Suspect]
     Indication: DEPRESSION
     Dosage: 15 MG, DAILY
     Route: 064
     Dates: start: 2008
  3. DEPAMIDE [Suspect]
     Indication: AFFECTIVE DISORDER
     Dosage: 300 MG, DAILY
     Route: 064
     Dates: start: 2008
  4. MEPRONIZINE [Suspect]
     Indication: INSOMNIA
     Dosage: 1 DF, DAILY
     Route: 064
     Dates: start: 2008
  5. DUPHASTON [Concomitant]
     Route: 064

REACTIONS (2)
  - Maternal exposure during pregnancy [Fatal]
  - Talipes [Fatal]
